FAERS Safety Report 21152633 (Version 1)
Quarter: 2022Q3

REPORT INFORMATION
  Report Type: Spontaneous
  Country: US (occurrence: US)
  Receive Date: 20220730
  Receipt Date: 20220730
  Transmission Date: 20221027
  Serious: No
  Sender: FDA-Public Use
  Company Number: US-SA-SAC20220725001599

PATIENT
  Sex: Female

DRUGS (1)
  1. DUPIXENT [Suspect]
     Active Substance: DUPILUMAB
     Indication: Dermatitis atopic
     Dosage: 300,MG, QOW
     Route: 058

REACTIONS (4)
  - Peripheral swelling [Unknown]
  - Pain [Not Recovered/Not Resolved]
  - Erythema [Unknown]
  - Skin warm [Unknown]
